FAERS Safety Report 22086338 (Version 2)
Quarter: 2023Q2

REPORT INFORMATION
  Report Type: Other
  Country: US (occurrence: US)
  Receive Date: 20230310
  Receipt Date: 20230522
  Transmission Date: 20230722
  Serious: Yes (Death, Other)
  Sender: FDA-Public Use
  Company Number: US-Covis Pharma GmbH-2023COV00497

PATIENT
  Sex: Female

DRUGS (1)
  1. HYDROXYPROGESTERONE CAPROATE [Suspect]
     Active Substance: HYDROXYPROGESTERONE CAPROATE
     Indication: Foetal exposure during pregnancy
     Route: 064
     Dates: start: 20221221, end: 20230124

REACTIONS (3)
  - Umbilical cord abnormality [Fatal]
  - Oedema [Fatal]
  - Stillbirth [Fatal]

NARRATIVE: CASE EVENT DATE: 20230101
